FAERS Safety Report 11750798 (Version 2)
Quarter: 2015Q4

REPORT INFORMATION
  Report Type: Spontaneous
  Country: US (occurrence: US)
  Receive Date: 20151118
  Receipt Date: 20151216
  Transmission Date: 20160304
  Serious: Yes (Other)
  Sender: FDA-Public Use
  Company Number: US-AMGEN-USASP2015120091

PATIENT
  Age: 60 Year
  Sex: Female

DRUGS (1)
  1. PROLIA [Suspect]
     Active Substance: DENOSUMAB
     Indication: OSTEOPOROSIS POSTMENOPAUSAL
     Dosage: UNK
     Route: 065
     Dates: start: 201503

REACTIONS (4)
  - Lymphadenitis [Unknown]
  - Lymphadenopathy [Unknown]
  - Lymph node pain [Unknown]
  - Lymphoma [Unknown]

NARRATIVE: CASE EVENT DATE: 2015
